FAERS Safety Report 8223041-5 (Version None)
Quarter: 2012Q1

REPORT INFORMATION
  Report Type: 
  Country: None (occurrence: None)
  Receive Date: 20120321
  Receipt Date: 20120309
  Transmission Date: 20120608
  Serious: Yes (Disabling, Other)
  Sender: FDA-Public Use
  Company Number: US-ASTRAZENECA-2012SE17844

PATIENT
  Sex: Male

DRUGS (1)
  1. NEXIUM [Suspect]
     Route: 048

REACTIONS (6)
  - GASTROOESOPHAGEAL REFLUX DISEASE [None]
  - LIMB INJURY [None]
  - ELECTROCUTION [None]
  - OSTEOMYELITIS [None]
  - DRUG DOSE OMISSION [None]
  - FOOT FRACTURE [None]
